FAERS Safety Report 10453623 (Version 1)
Quarter: 2014Q3

REPORT INFORMATION
  Report Type: Spontaneous
  Country: US (occurrence: US)
  Receive Date: 20140915
  Receipt Date: 20140915
  Transmission Date: 20150326
  Serious: Yes (Disabling, Other)
  Sender: FDA-Public Use
  Company Number: US-PFIZER INC-2014251844

PATIENT
  Age: 53 Year
  Sex: Male
  Weight: 106.58 kg

DRUGS (5)
  1. DILANTIN-125 [Suspect]
     Active Substance: PHENYTOIN
     Dosage: 100 MG, 2X/DAY
     Dates: start: 2006
  2. PRAVACHOL [Concomitant]
     Active Substance: PRAVASTATIN SODIUM
     Indication: BLOOD CHOLESTEROL ABNORMAL
     Dosage: 300 MG, DAILY
  3. LYRICA [Suspect]
     Active Substance: PREGABALIN
     Indication: NEUROPATHY PERIPHERAL
     Dosage: 150 MG, 3X/DAY
     Dates: start: 2006
  4. XANAX [Concomitant]
     Active Substance: ALPRAZOLAM
     Indication: ANXIETY
     Dosage: 2 MG, 2X/DAY
  5. DILANTIN-125 [Suspect]
     Active Substance: PHENYTOIN
     Dosage: 200 MG, 2X/DAY

REACTIONS (3)
  - HIV infection [Unknown]
  - Arthropathy [Unknown]
  - Convulsion [Unknown]

NARRATIVE: CASE EVENT DATE: 201401
